FAERS Safety Report 9528516 (Version 1)
Quarter: 2013Q3

REPORT INFORMATION
  Report Type: Report from Study
  Country: US (occurrence: US)
  Receive Date: 20130917
  Receipt Date: 20130917
  Transmission Date: 20140515
  Serious: Yes (Hospitalization)
  Sender: FDA-Public Use
  Company Number: US-ROCHE-1274919

PATIENT
  Age: 73 Year
  Sex: Male

DRUGS (7)
  1. RITUXAN [Suspect]
     Indication: B-CELL LYMPHOMA
     Route: 042
     Dates: start: 20100101
  2. CYCLOPHOSPHAMIDE [Concomitant]
     Indication: LYMPHOMA
     Route: 042
  3. ICE [Concomitant]
     Indication: LYMPHOMA
     Route: 042
  4. TREANDA [Concomitant]
     Indication: LYMPHOMA
     Route: 042
  5. DOXORUBICIN [Concomitant]
     Route: 042
  6. VINCRISTINE [Concomitant]
     Route: 042
  7. PREDNISONE [Concomitant]
     Route: 042

REACTIONS (8)
  - Renal failure acute [Recovering/Resolving]
  - Blood pressure decreased [Recovering/Resolving]
  - Staphylococcal infection [Recovering/Resolving]
  - White blood cell count increased [Recovering/Resolving]
  - Platelet count decreased [Recovering/Resolving]
  - Asthenia [Not Recovered/Not Resolved]
  - Fatigue [Not Recovered/Not Resolved]
  - Neuropathy peripheral [Not Recovered/Not Resolved]
